FAERS Safety Report 7906181-7 (Version None)
Quarter: 2011Q4

REPORT INFORMATION
  Report Type: 
  Country: None (occurrence: None)
  Receive Date: 20111110
  Receipt Date: 20111102
  Transmission Date: 20120403
  Serious: Yes (Death, Hospitalization)
  Sender: FDA-Public Use
  Company Number: CA-CELGENEUS-028-CCAZA-11102798

PATIENT
  Sex: Male
  Weight: 104.2 kg

DRUGS (16)
  1. METOPROLOL [Concomitant]
     Indication: ATRIAL FIBRILLATION
     Dosage: 12.5 MILLIGRAM
     Route: 048
  2. AZACITIDINE [Suspect]
     Dosage: 75 MILLIGRAM/SQ. METER
     Route: 058
     Dates: start: 20110906, end: 20110912
  3. AZACITIDINE [Suspect]
     Dosage: 75 MILLIGRAM/SQ. METER
     Route: 058
     Dates: start: 20111017, end: 20111023
  4. PREDNISONE TAB [Concomitant]
     Dosage: 20 MILLIGRAM
     Route: 048
     Dates: end: 20111001
  5. WHOLE BLOOD [Concomitant]
     Dosage: 2 UNITS
     Route: 065
     Dates: start: 20111021, end: 20111021
  6. HYDROXYUREA [Suspect]
     Dosage: 500 MILLIGRAM
     Route: 048
  7. DIGOXIN [Concomitant]
     Indication: ATRIAL FIBRILLATION
     Route: 065
  8. LEVOFLOXACIN [Concomitant]
     Indication: PNEUMONIA
     Route: 065
  9. TINZAPARIN [Concomitant]
     Dosage: 3500 UNITS
     Route: 058
     Dates: end: 20111017
  10. ACETAMINOPHEN [Concomitant]
     Route: 065
  11. SEPTRA [Suspect]
     Dosage: 400/80/ 4 TABLETS
     Route: 048
     Dates: end: 20111001
  12. FLOMAX [Concomitant]
     Dosage: .4 MILLIGRAM
     Route: 065
  13. PLATELETS [Concomitant]
     Route: 065
     Dates: start: 20111019, end: 20111019
  14. WHOLE BLOOD [Concomitant]
     Dosage: 1 UNIT
     Route: 065
     Dates: start: 20111020, end: 20111020
  15. PIPERACILLIN AND TAZOBACTAM [Concomitant]
     Indication: PNEUMONIA
     Route: 065
  16. ALLOPURINOL [Suspect]
     Dosage: 300 MILLIGRAM
     Route: 048

REACTIONS (5)
  - PNEUMONIA [None]
  - RESPIRATORY FAILURE [None]
  - RENAL FAILURE [None]
  - HAEMATOMA [None]
  - PAIN [None]
